FAERS Safety Report 8090072-8 (Version None)
Quarter: 2012Q1

REPORT INFORMATION
  Report Type: 
  Country: None (occurrence: None)
  Receive Date: 20120129
  Receipt Date: 20111031
  Transmission Date: 20120608
  Serious: No
  Sender: FDA-Public Use
  Company Number: US-ABBOTT-11P-163-0870022-00

PATIENT
  Age: 29 Year
  Sex: Female

DRUGS (4)
  1. SEASONALE [Concomitant]
     Indication: CONTRACEPTION
  2. HUMIRA [Suspect]
     Indication: PSORIASIS
     Dates: start: 20081101
  3. GEODON [Concomitant]
     Indication: DEPRESSION
  4. PAXIL [Concomitant]
     Indication: DEPRESSION

REACTIONS (3)
  - STREPTOCOCCAL INFECTION [None]
  - PSORIASIS [None]
  - DRUG INEFFECTIVE [None]
